FAERS Safety Report 9549946 (Version 2)
Quarter: 2013Q3

REPORT INFORMATION
  Report Type: Report from Study
  Country: BR (occurrence: BR)
  Receive Date: 20130924
  Receipt Date: 20130924
  Transmission Date: 20140515
  Serious: Yes (Hospitalization, Other)
  Sender: FDA-Public Use
  Company Number: ALCN2013BR003037

PATIENT
  Sex: 0

DRUGS (1)
  1. TRAVATAN [Suspect]
     Indication: GLAUCOMA
     Route: 047

REACTIONS (3)
  - Coma [Not Recovered/Not Resolved]
  - Fall [Recovered/Resolved]
  - Thrombosis [Unknown]
